FAERS Safety Report 9454754 (Version 1)
Quarter: 2013Q3

REPORT INFORMATION
  Report Type: Spontaneous
  Country: CH (occurrence: CH)
  Receive Date: 20130812
  Receipt Date: 20130812
  Transmission Date: 20140515
  Serious: Yes (Hospitalization)
  Sender: FDA-Public Use
  Company Number: CH-BRISTOL-MYERS SQUIBB COMPANY-19186485

PATIENT
  Age: 47 Year
  Sex: Male
  Weight: 83 kg

DRUGS (3)
  1. REYATAZ CAPS [Suspect]
     Indication: ANTIRETROVIRAL THERAPY
     Route: 048
     Dates: start: 200903, end: 20130523
  2. TRUVADA [Suspect]
     Indication: ANTIRETROVIRAL THERAPY
     Dosage: FILM COATED TABS
     Route: 048
     Dates: start: 200903, end: 20130515
  3. NORVIR [Suspect]
     Indication: ANTIRETROVIRAL THERAPY
     Dosage: CAPSULE; 1 DOSE FORM
     Route: 048
     Dates: start: 200903, end: 20130515

REACTIONS (6)
  - Convulsion [Unknown]
  - Hepatic enzyme increased [Recovering/Resolving]
  - Syncope [Unknown]
  - Blood creatine phosphokinase increased [Unknown]
  - Myoglobin blood increased [Unknown]
  - Glomerular filtration rate decreased [Unknown]
